FAERS Safety Report 19041090 (Version 1)
Quarter: 2021Q1

REPORT INFORMATION
  Report Type: Spontaneous
  Country: VN (occurrence: VN)
  Receive Date: 20210323
  Receipt Date: 20210323
  Transmission Date: 20210420
  Serious: Yes (Hospitalization)
  Sender: FDA-Public Use
  Company Number: VN-EMD SERONO-9226468

PATIENT
  Age: 38 Year
  Sex: Female
  Weight: 53 kg

DRUGS (4)
  1. GONAL?F [Concomitant]
     Active Substance: FOLLITROPIN
     Indication: OVULATION INDUCTION
     Route: 058
     Dates: start: 20210310
  2. CETROTIDE [Suspect]
     Active Substance: CETRORELIX ACETATE
     Indication: INFERTILITY FEMALE
  3. MENOPUR [Concomitant]
     Active Substance: FOLLITROPIN\LUTEINIZING HORMONE
     Indication: OVULATION INDUCTION
     Route: 058
     Dates: start: 20210315
  4. CETROTIDE [Suspect]
     Active Substance: CETRORELIX ACETATE
     Indication: OVULATION INDUCTION
     Route: 058
     Dates: start: 20210315, end: 20210315

REACTIONS (3)
  - Lip swelling [Recovered/Resolved]
  - Swelling of eyelid [Recovered/Resolved]
  - Pruritus [Unknown]

NARRATIVE: CASE EVENT DATE: 20210315
